FAERS Safety Report 13909245 (Version 1)
Quarter: 2017Q3

REPORT INFORMATION
  Report Type: Spontaneous
  Country: RO (occurrence: RO)
  Receive Date: 20170828
  Receipt Date: 20170828
  Transmission Date: 20171127
  Serious: Yes (Life-Threatening, Other)
  Sender: FDA-Public Use
  Company Number: RO-ACCORD-057575

PATIENT
  Age: 37 Year
  Sex: Male

DRUGS (6)
  1. ANIDULAFUNGIN [Concomitant]
     Active Substance: ANIDULAFUNGIN
  2. IMMUNOGLOBULINS [Suspect]
     Active Substance: IMMUNE GLOBULIN NOS
     Indication: HISTIOCYTOSIS HAEMATOPHAGIC
     Route: 042
  3. MOXIFLOXACIN/MOXIFLOXACIN HYDROCHLORIDE [Concomitant]
  4. ETOPOSIDE. [Suspect]
     Active Substance: ETOPOSIDE
     Indication: HISTIOCYTOSIS HAEMATOPHAGIC
  5. DEXAMETHASONE. [Suspect]
     Active Substance: DEXAMETHASONE
     Indication: HISTIOCYTOSIS HAEMATOPHAGIC
  6. LINEZOLID. [Concomitant]
     Active Substance: LINEZOLID

REACTIONS (2)
  - Drug ineffective [Unknown]
  - Off label use [Unknown]
